FAERS Safety Report 4525232-3 (Version None)
Quarter: 2004Q4

REPORT INFORMATION
  Report Type: 
  Country: None (occurrence: None)
  Receive Date: 20041213
  Receipt Date: 20041202
  Transmission Date: 20050328
  Serious: Yes (Hospitalization, Disabling)
  Sender: FDA-Public Use
  Company Number: PL-MERCK-0412POL00002

PATIENT
  Age: 56 Year
  Sex: Male

DRUGS (2)
  1. VIOXX [Suspect]
     Indication: INTERVERTEBRAL DISC DISORDER
     Route: 065
     Dates: start: 19990101, end: 20041001
  2. VIOXX [Suspect]
     Indication: SPONDYLOSIS
     Route: 065
     Dates: start: 19990101, end: 20041001

REACTIONS (1)
  - ISCHAEMIC CEREBRAL INFARCTION [None]
